FAERS Safety Report 8549760-9 (Version None)
Quarter: 2012Q3

REPORT INFORMATION
  Report Type: 
  Country: None (occurrence: None)
  Receive Date: 20120730
  Receipt Date: 20120725
  Transmission Date: 20120928
  Serious: No
  Sender: FDA-Public Use
  Company Number: US-PFIZER INC-2012181452

PATIENT
  Sex: Female
  Weight: 49.887 kg

DRUGS (5)
  1. TOPIRAMATE [Suspect]
     Indication: MIGRAINE
     Dosage: 100 MG, 2X/DAY
     Dates: start: 20090101, end: 20120724
  2. VENLAFAXINE HCL [Suspect]
     Indication: DEPRESSION
     Dosage: 150 MG, DAILY
     Dates: start: 20120501, end: 20120101
  3. VENLAFAXINE HCL [Suspect]
     Dosage: 150 MG, 2X/DAY
     Dates: start: 20120101
  4. ZYRTEC [Suspect]
     Indication: FEELING HOT
     Dosage: UNK, ONCE
     Dates: start: 20120718, end: 20120718
  5. CONCERTA [Concomitant]
     Indication: ATTENTION DEFICIT/HYPERACTIVITY DISORDER
     Dosage: 36 MG, DAILY

REACTIONS (6)
  - PRURITUS [None]
  - SKIN BURNING SENSATION [None]
  - FEELING HOT [None]
  - SWEAT GLAND DISORDER [None]
  - FEELING ABNORMAL [None]
  - RASH [None]
